FAERS Safety Report 19710258 (Version 2)
Quarter: 2021Q3

REPORT INFORMATION
  Report Type: Spontaneous
  Country: US (occurrence: US)
  Receive Date: 20210816
  Receipt Date: 20210915
  Transmission Date: 20211014
  Serious: No
  Sender: FDA-Public Use
  Company Number: US-ASTRAZENECA-2021A634773

PATIENT
  Age: 26919 Day
  Sex: Male
  Weight: 99.8 kg

DRUGS (2)
  1. BYDUREON [Concomitant]
     Active Substance: EXENATIDE
     Route: 058
  2. BYDUREON BCISE [Suspect]
     Active Substance: EXENATIDE
     Indication: TYPE 2 DIABETES MELLITUS
     Route: 058

REACTIONS (11)
  - Needle issue [Unknown]
  - Erythema [Unknown]
  - Device malfunction [Not Recovered/Not Resolved]
  - Product dose omission issue [Unknown]
  - Device leakage [Unknown]
  - COVID-19 [Unknown]
  - Peripheral swelling [Unknown]
  - Pain in extremity [Unknown]
  - Nephrolithiasis [Recovered/Resolved]
  - Injection site indentation [Not Recovered/Not Resolved]
  - Gout [Unknown]

NARRATIVE: CASE EVENT DATE: 202010
